FAERS Safety Report 8119491-8 (Version None)
Quarter: 2012Q1

REPORT INFORMATION
  Report Type: 
  Country: None (occurrence: None)
  Receive Date: 20120207
  Receipt Date: 20120127
  Transmission Date: 20120608
  Serious: Yes (Hospitalization)
  Sender: FDA-Public Use
  Company Number: PHHO2012FR001805

PATIENT
  Sex: Male

DRUGS (7)
  1. LERCANIDIPINE [Concomitant]
     Dosage: 20 MG, UNK
  2. NEBIVOLOL HCL [Concomitant]
     Dosage: 5 MG, UNK
  3. INDAPAMIDE [Concomitant]
     Dosage: 1.5 MG, UNK
  4. ALISKIREN [Suspect]
     Indication: CARDIOVASCULAR DISORDER
     Dosage: UNK
     Route: 048
     Dates: start: 20081215
  5. NOVOMIX [Concomitant]
     Indication: DIABETES MELLITUS
     Dosage: 22 U - 0 - 28 U
  6. OLMESARTAN MEDOXOMIL [Concomitant]
     Dosage: 40 MG, UNK
  7. METFORMIN HCL [Concomitant]
     Indication: DIABETES MELLITUS
     Dosage: 500 UNK, UNK

REACTIONS (1)
  - DIABETES MELLITUS INADEQUATE CONTROL [None]
